FAERS Safety Report 5208948-5 (Version None)
Quarter: 2007Q1

REPORT INFORMATION
  Report Type: 
  Country: None (occurrence: None)
  Receive Date: 20070111
  Receipt Date: 20070111
  Transmission Date: 20070707
  Serious: No
  Sender: FDA-Public Use
  Company Number: None

PATIENT
  Age: 56 Year
  Sex: Female
  Weight: 45.3597 kg

DRUGS (2)
  1. BONIVA [Suspect]
     Indication: OSTEOPOROSIS
     Dosage: MONTHLY PO
     Route: 048
     Dates: start: 20060501, end: 20060801
  2. FOSAMAX [Concomitant]

REACTIONS (2)
  - ABDOMINAL PAIN [None]
  - INFLUENZA LIKE ILLNESS [None]
